FAERS Safety Report 24745647 (Version 1)
Quarter: 2024Q4

REPORT INFORMATION
  Report Type: Spontaneous
  Country: US (occurrence: US)
  Receive Date: 20241218
  Receipt Date: 20241218
  Transmission Date: 20250115
  Serious: No
  Sender: UPSHER SMITH LABORATORIES
  Company Number: US-UPSHER-SMITH LABORATORIES, LLC-20241000180

PATIENT
  Age: 0 Year
  Sex: Male

DRUGS (1)
  1. FAMOTIDINE [Suspect]
     Active Substance: FAMOTIDINE
     Indication: Gastrooesophageal reflux disease
     Dosage: 0.3 ML, BID
     Route: 048
     Dates: start: 202404, end: 202409

REACTIONS (1)
  - Regurgitation [Recovered/Resolved]

NARRATIVE: CASE EVENT DATE: 20240701
